FAERS Safety Report 19126039 (Version 3)
Quarter: 2023Q1

REPORT INFORMATION
  Report Type: Report from Study
  Country: ES (occurrence: None)
  Receive Date: 20210412
  Receipt Date: 20230224
  Transmission Date: 20230417
  Serious: Yes (Life-Threatening, Hospitalization)
  Sender: FDA-Public Use
  Company Number: ES-EISAI MEDICAL RESEARCH-EC-2021-091041

PATIENT
  Age: 88 Year
  Sex: Male
  Weight: 79.2 kg

DRUGS (12)
  1. LENVATINIB [Suspect]
     Active Substance: LENVATINIB
     Indication: Malignant melanoma stage IV
     Route: 048
     Dates: start: 20200318, end: 20201029
  2. LENVATINIB [Suspect]
     Active Substance: LENVATINIB
     Indication: Malignant melanoma stage III
  3. PEMBROLIZUMAB [Suspect]
     Active Substance: PEMBROLIZUMAB
     Indication: Malignant melanoma stage IV
     Route: 041
     Dates: start: 20200318, end: 20200812
  4. PEMBROLIZUMAB [Suspect]
     Active Substance: PEMBROLIZUMAB
     Indication: Malignant melanoma stage III
     Route: 041
     Dates: start: 20201009, end: 20201009
  5. PEMBROLIZUMAB [Suspect]
     Active Substance: PEMBROLIZUMAB
     Route: 041
     Dates: start: 20201204, end: 20220421
  6. ACETAMINOPHEN [Concomitant]
     Active Substance: ACETAMINOPHEN
     Dates: start: 202002
  7. EBASTINE [Concomitant]
     Active Substance: EBASTINE
     Dates: start: 20200423
  8. AMLODIPINE [Concomitant]
     Active Substance: AMLODIPINE BESYLATE
     Dates: start: 20200425, end: 20201108
  9. LEVOTHYROXINE SODIUM [Concomitant]
     Active Substance: LEVOTHYROXINE SODIUM
     Dates: start: 20200721
  10. QUETIAPINE FUMARATE [Concomitant]
     Active Substance: QUETIAPINE FUMARATE
     Dates: start: 20200909, end: 20201116
  11. PREDNISONE [Concomitant]
     Active Substance: PREDNISONE
     Dates: start: 20201022, end: 20220307
  12. CIPROFLOXACIN [Concomitant]
     Active Substance: CIPROFLOXACIN
     Dates: start: 20201030, end: 20201109

REACTIONS (1)
  - Pulmonary embolism [Recovered/Resolved]

NARRATIVE: CASE EVENT DATE: 20201106
